FAERS Safety Report 14256181 (Version 1)
Quarter: 2017Q4

REPORT INFORMATION
  Report Type: Spontaneous
  Country: US (occurrence: US)
  Receive Date: 20171206
  Receipt Date: 20171206
  Transmission Date: 20180321
  Serious: Yes (Other)
  Sender: FDA-Public Use
  Company Number: US-BAYER-2017-231313

PATIENT
  Age: 80 Year
  Sex: Female

DRUGS (1)
  1. ALEVE [Suspect]
     Active Substance: NAPROXEN SODIUM
     Indication: PAIN
     Dosage: 4 DF, UNK (2 IN DAY AND 2 AT NIGHT)
     Route: 048

REACTIONS (3)
  - Incorrect dosage administered [Unknown]
  - Incorrect drug administration duration [Unknown]
  - Drug dependence [Unknown]
